FAERS Safety Report 20464357 (Version 1)
Quarter: 2022Q1

REPORT INFORMATION
  Report Type: Spontaneous
  Country: US (occurrence: US)
  Receive Date: 20220211
  Receipt Date: 20220211
  Transmission Date: 20220424
  Serious: Yes (Other)
  Sender: FDA-Public Use
  Company Number: US-NOVARTISPH-NVSC2022US031697

PATIENT
  Age: 73 Year
  Sex: Male

DRUGS (2)
  1. RANITIDINE [Suspect]
     Active Substance: RANITIDINE
     Indication: Hyperchlorhydria
     Dosage: 150 MG,300 MG,,DAILY,
     Route: 048
     Dates: start: 198301, end: 200102
  2. RANITIDINE [Suspect]
     Active Substance: RANITIDINE
     Indication: Hyperchlorhydria
     Dosage: 150 MG,300 MG,,DAILY,
     Route: 048
     Dates: start: 198301, end: 200102

REACTIONS (1)
  - Prostate cancer [Recovering/Resolving]

NARRATIVE: CASE EVENT DATE: 20071101
